FAERS Safety Report 7600098-3 (Version None)
Quarter: 2011Q3

REPORT INFORMATION
  Report Type: 
  Country: None (occurrence: None)
  Receive Date: 20110711
  Receipt Date: 20110628
  Transmission Date: 20111222
  Serious: Yes (Other)
  Sender: FDA-Public Use
  Company Number: CA-JNJFOC-20101105950

PATIENT
  Sex: Female
  Weight: 71 kg

DRUGS (7)
  1. SEREVENT [Concomitant]
  2. PROZAC [Concomitant]
  3. DOMPERIDONE [Concomitant]
  4. PULMICORT [Concomitant]
  5. REMICADE [Suspect]
     Route: 042
     Dates: start: 20070801
  6. REMICADE [Suspect]
     Indication: CROHN'S DISEASE
     Route: 042
     Dates: start: 20101015
  7. LABETALOL HCL [Concomitant]
     Indication: HYPERTENSION
     Dates: start: 20090101

REACTIONS (3)
  - HYPERTENSION [None]
  - MATERNAL EXPOSURE DURING PREGNANCY [None]
  - ARTHRALGIA [None]
